FAERS Safety Report 5471580-2 (Version None)
Quarter: 2007Q3

REPORT INFORMATION
  Report Type: 
  Country: None (occurrence: None)
  Receive Date: 20070928
  Receipt Date: 20070123
  Transmission Date: 20080115
  Serious: No
  Sender: FDA-Public Use
  Company Number: US-BRISTOL-MYERS SQUIBB COMPANY-13653324

PATIENT
  Age: 72 Year
  Sex: Female
  Weight: 101 kg

DRUGS (9)
  1. DEFINITY [Suspect]
     Indication: ECHOCARDIOGRAM
     Dosage: DEFINITY 0.3CC IV PUSH
     Route: 042
  2. ECOTRIN [Concomitant]
  3. PRED FORTE [Concomitant]
  4. LANOXIN [Concomitant]
  5. POTASSIUM CHLORIDE [Concomitant]
  6. FUROSEMIDE [Concomitant]
  7. ATENOLOL [Concomitant]
  8. LUMIGAN [Concomitant]
  9. PRILOSEC [Concomitant]

REACTIONS (2)
  - ARTHRALGIA [None]
  - BACK PAIN [None]
